FAERS Safety Report 7137824-6 (Version None)
Quarter: 2010Q4

REPORT INFORMATION
  Report Type: 
  Country: None (occurrence: None)
  Receive Date: 20101206
  Receipt Date: 20101129
  Transmission Date: 20110411
  Serious: Yes (Hospitalization)
  Sender: FDA-Public Use
  Company Number: DE-NOVOPROD-319152

PATIENT
  Age: 81 Year
  Sex: Female
  Weight: 68 kg

DRUGS (16)
  1. ACTRAPID [Suspect]
     Indication: DIABETES MELLITUS
     Dosage: 42 IU, QD
     Route: 058
     Dates: start: 20050101
  2. ACTRAPID [Suspect]
     Dosage: 32 IU, QD
     Route: 058
  3. PROTAPHANE [Suspect]
     Indication: DIABETES MELLITUS
     Dosage: 22 IU, QD
     Route: 058
     Dates: start: 20050101
  4. PROTAPHANE [Suspect]
     Dosage: 10 IU, QD
     Route: 058
  5. PALLADONE [Suspect]
     Dosage: 1.3 MG, QD
     Route: 048
     Dates: start: 20090106, end: 20090112
  6. PLAVIX [Concomitant]
     Dosage: 75 MG, QD
     Route: 048
  7. OMEPRAZOL                          /00661201/ [Concomitant]
     Dosage: 40 MG, QD
     Route: 048
  8. ATACAND [Concomitant]
     Dosage: UNK
     Route: 048
  9. LOCOL [Concomitant]
     Dosage: 40 MG, QD
     Route: 048
     Dates: start: 20030101
  10. HYDROCHLOROTHIAZIDE [Concomitant]
     Dosage: 12.5 MG, QD
     Route: 048
     Dates: start: 20071201
  11. CALCIMAGON                         /00108001/ [Concomitant]
     Dosage: UNK
     Route: 048
     Dates: start: 20071201
  12. TRAMADOL HCL [Concomitant]
     Dosage: UNK
     Route: 048
     Dates: start: 20070101
  13. LEVOTHYROXINE SODIUM [Concomitant]
     Dosage: 100 MG, QD
     Route: 048
     Dates: start: 20071201
  14. CITALOPRAM [Concomitant]
     Dosage: 20 MG, QD
     Route: 048
     Dates: start: 20071201
  15. SPIRIVA [Concomitant]
     Dosage: 18 MG, QD
     Route: 048
     Dates: start: 20071201
  16. VIANI [Concomitant]
     Dosage: 1 DF, QD
     Route: 055
     Dates: start: 20071201

REACTIONS (3)
  - HYPOGLYCAEMIA [None]
  - HYPOPHAGIA [None]
  - SOMNOLENCE [None]
